FAERS Safety Report 5645486-X (Version None)
Quarter: 2008Q1

REPORT INFORMATION
  Report Type: 
  Country: None (occurrence: None)
  Receive Date: 20080229
  Receipt Date: 20071126
  Transmission Date: 20080703
  Serious: No
  Sender: FDA-Public Use
  Company Number: US-BRISTOL-MYERS SQUIBB COMPANY-13994017

PATIENT
  Age: 64 Year
  Sex: Male
  Weight: 86 kg

DRUGS (12)
  1. TAXOL [Suspect]
     Indication: NON-SMALL CELL LUNG CANCER
     Route: 042
     Dates: start: 20071120, end: 20071120
  2. ZOFRAN [Concomitant]
     Route: 048
  3. BENADRYL [Concomitant]
     Route: 048
  4. DEXAMETHASONE TAB [Concomitant]
     Route: 048
  5. DECADRON [Concomitant]
     Route: 048
  6. TYLENOL (CAPLET) [Concomitant]
  7. CIMETIDINE [Concomitant]
  8. PREGABALIN [Concomitant]
  9. PRAMIPEXOLE HCL [Concomitant]
  10. PERCOCET [Concomitant]
  11. CARBOPLATIN [Concomitant]
     Dates: start: 20071120
  12. AVASTIN [Concomitant]
     Dates: start: 20071120

REACTIONS (1)
  - EXTRAVASATION [None]
